FAERS Safety Report 17789873 (Version 1)
Quarter: 2020Q2

REPORT INFORMATION
  Report Type: Spontaneous
  Country: US (occurrence: US)
  Receive Date: 20200515
  Receipt Date: 20200515
  Transmission Date: 20200714
  Serious: Yes (Hospitalization)
  Sender: FDA-Public Use
  Company Number: US-ALKEM LABORATORIES LIMITED-US-ALKEM-2020-01696

PATIENT
  Age: 47 Year
  Sex: Male

DRUGS (1)
  1. METFORMIN HYDROCHLORIDE. [Suspect]
     Active Substance: METFORMIN HYDROCHLORIDE
     Indication: PRODUCT USED FOR UNKNOWN INDICATION
     Dosage: 1000 MILLIGRAM, BID
     Route: 048

REACTIONS (5)
  - Shock [Recovered/Resolved]
  - Toxicity to various agents [Unknown]
  - Respiratory failure [Recovered/Resolved]
  - Renal tubular necrosis [Recovered/Resolved]
  - Overdose [Unknown]
